FAERS Safety Report 5455522-1 (Version None)
Quarter: 2007Q3

REPORT INFORMATION
  Report Type: 
  Country: None (occurrence: None)
  Receive Date: 20070913
  Receipt Date: 20070913
  Transmission Date: 20080115
  Serious: Yes (Life-Threatening, Hospitalization)
  Sender: FDA-Public Use
  Company Number: None

PATIENT
  Sex: Female
  Weight: 64 kg

DRUGS (2)
  1. CETUXIMAB BMS [Suspect]
     Indication: THYROID CANCER
     Dosage: 423MG Q WEEK IV
     Route: 042
     Dates: start: 20070710, end: 20070911
  2. DASATINIB BMS [Suspect]
     Indication: THYROID CANCER
     Dosage: 100MG QD PO
     Route: 048
     Dates: start: 20070709, end: 20070911

REACTIONS (6)
  - ALANINE AMINOTRANSFERASE ABNORMAL [None]
  - ASPARTATE AMINOTRANSFERASE ABNORMAL [None]
  - DYSPNOEA [None]
  - HAEMOGLOBIN ABNORMAL [None]
  - OXYGEN SATURATION DECREASED [None]
  - PLEURAL EFFUSION [None]
